FAERS Safety Report 12679715 (Version 1)
Quarter: 2016Q3

REPORT INFORMATION
  Report Type: Spontaneous
  Country: US (occurrence: US)
  Receive Date: 20160824
  Receipt Date: 20160824
  Transmission Date: 20161109
  Serious: No
  Sender: FDA-Public Use
  Company Number: US-TEVA-682715USA

PATIENT
  Age: 56 Year
  Sex: Male

DRUGS (4)
  1. AZELASTINE [Concomitant]
     Active Substance: AZELASTINE
  2. TRIAZOLAM. [Concomitant]
     Active Substance: TRIAZOLAM
  3. GABAPENTIN. [Concomitant]
     Active Substance: GABAPENTIN
  4. COPAXONE [Suspect]
     Active Substance: GLATIRAMER ACETATE
     Indication: MULTIPLE SCLEROSIS
     Route: 058
     Dates: start: 201510

REACTIONS (3)
  - Musculoskeletal stiffness [Unknown]
  - Fatigue [Unknown]
  - Meralgia paraesthetica [Unknown]

NARRATIVE: CASE EVENT DATE: 201510
